FAERS Safety Report 8603411-3 (Version None)
Quarter: 2012Q3

REPORT INFORMATION
  Report Type: 
  Country: None (occurrence: None)
  Receive Date: 20120817
  Receipt Date: 20120809
  Transmission Date: 20120928
  Serious: Yes (Other)
  Sender: FDA-Public Use
  Company Number: US-ABBOTT-12P-163-0967201-00

PATIENT
  Age: 33 Year
  Sex: Female

DRUGS (3)
  1. HUMIRA [Suspect]
     Indication: COLITIS ULCERATIVE
     Route: 058
     Dates: start: 20080101, end: 20120726
  2. SYNTHROID [Concomitant]
     Indication: HYPOTHYROIDISM
     Dosage: 88MCG DAILY
  3. SINGULAIR [Concomitant]
     Indication: SEASONAL ALLERGY
     Dosage: 10MG DAILY

REACTIONS (3)
  - DEMYELINATION [None]
  - FEELING ABNORMAL [None]
  - OFF LABEL USE [None]
